FAERS Safety Report 22075455 (Version 1)
Quarter: 2023Q1

REPORT INFORMATION
  Report Type: Spontaneous
  Country: ES (occurrence: ES)
  Receive Date: 20230308
  Receipt Date: 20230308
  Transmission Date: 20230417
  Serious: Yes (Hospitalization)
  Sender: FDA-Public Use
  Company Number: None

PATIENT
  Age: 58 Year
  Sex: Male

DRUGS (4)
  1. CARBOPLATIN [Suspect]
     Active Substance: CARBOPLATIN
     Indication: Lung cancer metastatic
     Dosage: 805.5 MG (4.8MG/TOTAL)
     Route: 042
     Dates: start: 20230105
  2. CARBOPLATIN [Suspect]
     Active Substance: CARBOPLATIN
     Dosage: 80% REDUCTION OF THE TOTAL CYCLE1+1 LAST CYCLE 2+1 29JAN2023/CYCLE3+16FEB2023 749 MG(749 MG/TOTAL)
     Route: 042
     Dates: end: 20230216
  3. PEMETREXED [Suspect]
     Active Substance: PEMETREXED
     Indication: Lung cancer metastatic
     Dosage: 922.5 MG (450MG/M2)
     Route: 042
     Dates: start: 20230105
  4. PEMETREXED [Suspect]
     Active Substance: PEMETREXED
     Dosage: 80% REDUCTION OF THE TOTAL CYCLE 1 +1 LAST CYCLE 2 +1 29JAN2023, CYCLE 3 +16FEB2023
     Route: 042
     Dates: end: 20230216

REACTIONS (2)
  - Pyrexia [Recovering/Resolving]
  - Pancytopenia [Not Recovered/Not Resolved]

NARRATIVE: CASE EVENT DATE: 20230224
